FAERS Safety Report 6026602-7 (Version None)
Quarter: 2008Q4

REPORT INFORMATION
  Report Type: 
  Country: None (occurrence: None)
  Receive Date: 20081231
  Receipt Date: 20081218
  Transmission Date: 20090506
  Serious: Yes (Hospitalization)
  Sender: FDA-Public Use
  Company Number: 109224

PATIENT
  Age: 68 Year
  Sex: Female
  Weight: 89.8122 kg

DRUGS (3)
  1. DIPHEDRYL TABLETS/ 25 MG/ PERRIGO [Suspect]
     Indication: INSOMNIA
     Dosage: 25-50 MG/ SEVERAL TIMES WEEKLY/ ORAL
     Route: 048
     Dates: start: 20080601
  2. HYZAAR [Concomitant]
  3. LEVOTHYROXINE SODIUM [Concomitant]

REACTIONS (2)
  - BLOOD PRESSURE INCREASED [None]
  - CHEST PAIN [None]
